FAERS Safety Report 8305389-9 (Version None)
Quarter: 2012Q2

REPORT INFORMATION
  Report Type: 
  Country: None (occurrence: None)
  Receive Date: 20120418
  Receipt Date: 20120412
  Transmission Date: 20120825
  Serious: Yes (Death, Hospitalization)
  Sender: FDA-Public Use
  Company Number: ADR-2012-00711

PATIENT
  Age: 53 Year
  Sex: Male

DRUGS (1)
  1. BACLOFEN [Suspect]

REACTIONS (1)
  - ALCOHOL USE [None]
